FAERS Safety Report 19124737 (Version 1)
Quarter: 2021Q2

REPORT INFORMATION
  Report Type: Report from Study
  Country: US (occurrence: US)
  Receive Date: 20210413
  Receipt Date: 20210413
  Transmission Date: 20210717
  Serious: Yes (Death)
  Sender: FDA-Public Use
  Company Number: US-VIFOR (INTERNATIONAL) INC.-VIT-2021-03215

PATIENT
  Sex: Male
  Weight: 66 kg

DRUGS (1)
  1. VELPHORO [Suspect]
     Active Substance: SUCROFERRIC OXYHYDROXIDE
     Indication: HYPERPHOSPHATAEMIA
     Dosage: 3 TABLETS 3 TIMES DAILY
     Route: 048
     Dates: start: 201903

REACTIONS (2)
  - COVID-19 [Fatal]
  - Overdose [Unknown]

NARRATIVE: CASE EVENT DATE: 201903
